FAERS Safety Report 6583779-2 (Version None)
Quarter: 2010Q1

REPORT INFORMATION
  Report Type: 
  Country: None (occurrence: None)
  Receive Date: 20100213
  Receipt Date: 20100213
  Transmission Date: 20100710
  Serious: Yes (Hospitalization, Disabling)
  Sender: FDA-Public Use
  Company Number: None

PATIENT
  Age: 63 Year
  Sex: Male
  Weight: 74.8435 kg

DRUGS (2)
  1. FOSAMAX [Suspect]
     Indication: OSTEOPOROSIS
     Dosage: 10MG DAILY PO
     Route: 048
     Dates: start: 20000401, end: 20050401
  2. FOSAMAX [Suspect]
     Indication: OSTEOPOROSIS
     Dosage: 70MG WEEKLY PO
     Route: 048
     Dates: start: 20050402, end: 20091215

REACTIONS (5)
  - ANKLE FRACTURE [None]
  - FEMUR FRACTURE [None]
  - FOOT FRACTURE [None]
  - OSTEONECROSIS [None]
  - STRESS FRACTURE [None]
